FAERS Safety Report 25014627 (Version 1)
Quarter: 2025Q1

REPORT INFORMATION
  Report Type: Report from Study
  Country: TW (occurrence: TW)
  Receive Date: 20250226
  Receipt Date: 20250226
  Transmission Date: 20250409
  Serious: Yes (Hospitalization)
  Sender: SANOFI AVENTIS
  Company Number: TW-SA-2025SA057398

PATIENT
  Age: 71 Year
  Sex: Female

DRUGS (1)
  1. AGALSIDASE BETA [Suspect]
     Active Substance: AGALSIDASE BETA
     Indication: Fabry^s disease
     Route: 065
     Dates: start: 20250211

REACTIONS (3)
  - Muscular weakness [Unknown]
  - Constipation [Unknown]
  - Dysphagia [Unknown]

NARRATIVE: CASE EVENT DATE: 20250213
